FAERS Safety Report 7081253-0 (Version None)
Quarter: 2010Q4

REPORT INFORMATION
  Report Type: 
  Country: None (occurrence: None)
  Receive Date: 20101102
  Receipt Date: 20101102
  Transmission Date: 20110411
  Serious: Yes (Life-Threatening, Hospitalization)
  Sender: FDA-Public Use
  Company Number: None

PATIENT
  Age: 36 Year
  Sex: Female
  Weight: 78 kg

DRUGS (4)
  1. VANCOMYCIN [Suspect]
     Indication: PNEUMONIA
     Dosage: 1250 G EVERY 8 HOURS IV
     Route: 042
     Dates: start: 20101002
  2. VANCOMYCIN [Suspect]
     Indication: STREPTOCOCCAL SEPSIS
     Dosage: 1250 G EVERY 8 HOURS IV
     Route: 042
     Dates: start: 20101002
  3. LEVAQUIN [Suspect]
     Indication: PNEUMONIA
     Dosage: 750 MG EVERY 24 HOURS IV
     Route: 042
     Dates: start: 20101002
  4. LEVAQUIN [Suspect]
     Indication: STREPTOCOCCAL SEPSIS
     Dosage: 750 MG EVERY 24 HOURS IV
     Route: 042
     Dates: start: 20101002

REACTIONS (11)
  - BLISTER [None]
  - DRUG ERUPTION [None]
  - DRUG HYPERSENSITIVITY [None]
  - ERYTHEMA MULTIFORME [None]
  - HYPOTENSION [None]
  - PETECHIAE [None]
  - PYREXIA [None]
  - RASH [None]
  - SYNCOPE [None]
  - TACHYCARDIA [None]
  - WHITE BLOOD CELL COUNT INCREASED [None]
